FAERS Safety Report 4543940-5 (Version None)
Quarter: 2005Q1

REPORT INFORMATION
  Report Type: 
  Country: None (occurrence: None)
  Receive Date: 20050104
  Receipt Date: 20041228
  Transmission Date: 20050727
  Serious: Yes (Other)
  Sender: FDA-Public Use
  Company Number: US-JNJFOC-20041207073

PATIENT
  Age: 7 Year
  Sex: Female
  Weight: 19.5 kg

DRUGS (4)
  1. CONCERTA [Suspect]
     Indication: ATTENTION DEFICIT/HYPERACTIVITY DISORDER
     Route: 049
     Dates: start: 20041227, end: 20041228
  2. SINGULAIR [Concomitant]
     Indication: SEASONAL ALLERGY
  3. CLARINEX [Concomitant]
     Indication: SEASONAL ALLERGY
  4. FLONASE [Concomitant]
     Indication: SEASONAL ALLERGY

REACTIONS (1)
  - TRANSIENT PSYCHOSIS [None]
